FAERS Safety Report 7795887-9 (Version None)
Quarter: 2011Q4

REPORT INFORMATION
  Report Type: 
  Country: None (occurrence: None)
  Receive Date: 20111004
  Receipt Date: 20110929
  Transmission Date: 20120403
  Serious: Yes (Life-Threatening, Hospitalization)
  Sender: FDA-Public Use
  Company Number: GB-ASTRAZENECA-2011SE58693

PATIENT
  Sex: Male
  Weight: 1.8 kg

DRUGS (4)
  1. BENDROFLUAZIDE [Concomitant]
  2. NEBIVOLOL HCL [Concomitant]
  3. LISINOPRIL [Suspect]
     Indication: HYPERTENSION
     Route: 048
     Dates: start: 20101029, end: 20110516
  4. ASPIRIN [Concomitant]

REACTIONS (6)
  - RENAL IMPAIRMENT NEONATAL [None]
  - PERSISTENT FOETAL CIRCULATION [None]
  - RENAL TUBULAR ACIDOSIS [None]
  - SKULL MALFORMATION [None]
  - OSTEOPENIA [None]
  - OLIGOHYDRAMNIOS [None]
